FAERS Safety Report 16023136 (Version 2)
Quarter: 2019Q1

REPORT INFORMATION
  Report Type: Spontaneous
  Country: GB (occurrence: GB)
  Receive Date: 20190301
  Receipt Date: 20190313
  Transmission Date: 20190418
  Serious: Yes (Death)
  Sender: FDA-Public Use
  Company Number: GB-PFIZER INC-2019086950

PATIENT
  Sex: Male

DRUGS (4)
  1. CODEINE PHOSPHATE [Interacting]
     Active Substance: CODEINE PHOSPHATE
     Dosage: UNK
  2. DIAZEPAM. [Interacting]
     Active Substance: DIAZEPAM
     Dosage: UNK
  3. EFEXOR [Suspect]
     Active Substance: VENLAFAXINE HYDROCHLORIDE
     Dosage: UNK
  4. DICLOFENAC [Interacting]
     Active Substance: DICLOFENAC
     Dosage: UNK

REACTIONS (2)
  - Completed suicide [Fatal]
  - Drug interaction [Fatal]

NARRATIVE: CASE EVENT DATE: 20060101
